FAERS Safety Report 10999922 (Version 1)
Quarter: 2015Q2

REPORT INFORMATION
  Report Type: Spontaneous
  Country: US (occurrence: US)
  Receive Date: 20150408
  Receipt Date: 20150408
  Transmission Date: 20150821
  Serious: No
  Sender: FDA-Public Use
  Company Number: US-SA-2014SA075768

PATIENT

DRUGS (7)
  1. ALLEGRA [Suspect]
     Active Substance: FEXOFENADINE HYDROCHLORIDE
     Indication: PRODUCT USED FOR UNKNOWN INDICATION
     Route: 048
  2. FLONASE [Concomitant]
     Active Substance: FLUTICASONE PROPIONATE
  3. MEDROL [Concomitant]
     Active Substance: METHYLPREDNISOLONE
  4. MUCINEX [Concomitant]
     Active Substance: GUAIFENESIN
  5. VITAMIN C [Concomitant]
     Active Substance: ASCORBIC ACID
  6. SINGULAIR [Concomitant]
     Active Substance: MONTELUKAST SODIUM
  7. VICKS NYQUIL [Concomitant]
     Active Substance: ACETAMINOPHEN\DEXTROMETHORPHAN HYDROBROMIDE\DOXYLAMINE SUCCINATE

REACTIONS (3)
  - Crying [Unknown]
  - Drug ineffective [Unknown]
  - Liver disorder [Unknown]
